FAERS Safety Report 4692403-5 (Version None)
Quarter: 2005Q2

REPORT INFORMATION
  Report Type: 
  Country: None (occurrence: None)
  Receive Date: 20050615
  Receipt Date: 20050531
  Transmission Date: 20051028
  Serious: Yes (Hospitalization)
  Sender: FDA-Public Use
  Company Number: JP_050606702

PATIENT
  Age: 68 Year
  Sex: Female

DRUGS (4)
  1. VINBLASTINE SULFATE [Suspect]
     Indication: RENAL NEOPLASM
     Dosage: 3 MG OTEHR
     Route: 050
     Dates: start: 20050527, end: 20050501
  2. CISPLATIN [Concomitant]
  3. FARMORUBICIN (EPIRUBICIN /00699301/) [Concomitant]
  4. METHOTREXATE [Concomitant]

REACTIONS (1)
  - HYPONATRAEMIA [None]
